FAERS Safety Report 13913514 (Version 1)
Quarter: 2017Q3

REPORT INFORMATION
  Report Type: Spontaneous
  Country: US (occurrence: US)
  Receive Date: 20170828
  Receipt Date: 20170828
  Transmission Date: 20171127
  Serious: No
  Sender: FDA-Public Use
  Company Number: US-ROCHE-1137589

PATIENT
  Sex: Female
  Weight: 47.6 kg

DRUGS (2)
  1. NUTROPIN [Suspect]
     Active Substance: SOMATROPIN
     Indication: TURNER^S SYNDROME
     Dosage: 0.45 ML INJECTION VOLUME
     Route: 058
  2. NUTROPIN [Suspect]
     Active Substance: SOMATROPIN
     Indication: GROWTH HORMONE DEFICIENCY
     Dosage: 0.48 CC PER INJECTION, DILUTED WITH 2 ML
     Route: 058

REACTIONS (5)
  - Cough [Unknown]
  - Sneezing [Unknown]
  - Eye pruritus [Unknown]
  - Erythema [Unknown]
  - Dry skin [Unknown]
